FAERS Safety Report 11100296 (Version 1)
Quarter: 2015Q2

REPORT INFORMATION
  Report Type: Spontaneous
  Country: US (occurrence: None)
  Receive Date: 20150507
  Receipt Date: 20150507
  Transmission Date: 20150821
  Serious: Yes (Disabling, Other)
  Sender: FDA-Public Use
  Company Number: None

PATIENT
  Age: 55 Year
  Sex: Female
  Weight: 72.58 kg

DRUGS (1)
  1. CLINDAMYCIN HCL 150 MG AUROBINDO PHAR [Suspect]
     Active Substance: CLINDAMYCIN HYDROCHLORIDE
     Indication: GINGIVITIS
     Route: 048
     Dates: start: 20150323, end: 20150326

REACTIONS (3)
  - Headache [None]
  - Clostridium difficile infection [None]
  - Abdominal discomfort [None]

NARRATIVE: CASE EVENT DATE: 20150405
